FAERS Safety Report 8861274 (Version 3)
Quarter: 2013Q1

REPORT INFORMATION
  Report Type: Spontaneous
  Country: US (occurrence: US)
  Receive Date: 20121026
  Receipt Date: 20130131
  Transmission Date: 20140127
  Serious: No
  Sender: FDA-Public Use
  Company Number: US-PFIZER INC-2012267459

PATIENT
  Age: 60 Year
  Sex: Female
  Weight: 74 kg

DRUGS (6)
  1. CHANTIX [Suspect]
     Indication: SMOKING CESSATION THERAPY
     Dosage: 0.5 MG, 1X/DAY
     Route: 048
     Dates: start: 201006
  2. CHANTIX [Suspect]
     Dosage: UNK
     Route: 048
     Dates: start: 2012, end: 2012
  3. DIAZEPAM [Concomitant]
     Dosage: UNK
  4. NORCO [Concomitant]
     Dosage: 10-325
  5. IMIPRAMINE [Concomitant]
     Dosage: 10 MG, UNK
  6. PIROXICAM [Concomitant]
     Dosage: UNK

REACTIONS (1)
  - Nausea [Recovered/Resolved]
